FAERS Safety Report 14849397 (Version 1)
Quarter: 2018Q2

REPORT INFORMATION
  Report Type: Spontaneous
  Country: AR (occurrence: AR)
  Receive Date: 20180504
  Receipt Date: 20180504
  Transmission Date: 20180711
  Serious: Yes (Other)
  Sender: FDA-Public Use
  Company Number: AR-IMPAX LABORATORIES, INC-2018-IPXL-01498

PATIENT
  Age: 14 Year
  Sex: Female

DRUGS (3)
  1. PROPRANOLOL HYDROCHLORIDE IR [Suspect]
     Active Substance: PROPRANOLOL HYDROCHLORIDE
     Dosage: 240 MG, DAILY
     Route: 065
  2. PROPRANOLOL HYDROCHLORIDE IR [Suspect]
     Active Substance: PROPRANOLOL HYDROCHLORIDE
     Indication: THYROTOXIC CRISIS
     Dosage: 120 MG, DAILY
     Route: 065
  3. HYDROCORTISONE. [Suspect]
     Active Substance: HYDROCORTISONE
     Indication: THYROTOXIC CRISIS
     Dosage: UNK
     Route: 042

REACTIONS (1)
  - Psychotic disorder [Unknown]
